FAERS Safety Report 4307074-7 (Version None)
Quarter: 2004Q1

REPORT INFORMATION
  Report Type: 
  Country: None (occurrence: None)
  Receive Date: 20040225
  Receipt Date: 20040205
  Transmission Date: 20041129
  Serious: Yes (Other)
  Sender: FDA-Public Use
  Company Number: AU_040207426

PATIENT
  Age: 50 Year
  Sex: Male

DRUGS (2)
  1. XIGRIS [Suspect]
     Indication: PANCREATITIS
     Dosage: 24 UG/KG/HR
     Dates: start: 20040204, end: 20040208
  2. NORADRENALINE [Concomitant]

REACTIONS (1)
  - MYOCARDIAL INFARCTION [None]
